FAERS Safety Report 10087004 (Version 2)
Quarter: 2014Q2

REPORT INFORMATION
  Report Type: Spontaneous
  Country: DE (occurrence: DE)
  Receive Date: 20140418
  Receipt Date: 20140418
  Transmission Date: 20141212
  Serious: Yes (Other)
  Sender: FDA-Public Use
  Company Number: DE-BRISTOL-MYERS SQUIBB COMPANY-20599171

PATIENT
  Age: 66 Year
  Sex: Male
  Weight: 110 kg

DRUGS (2)
  1. FORXIGA [Suspect]
     Indication: DIABETES MELLITUS
     Route: 048
     Dates: start: 20130906, end: 20140207
  2. FORXIGA [Suspect]
     Indication: OBESITY
     Route: 048
     Dates: start: 20130906, end: 20140207

REACTIONS (1)
  - Renal failure [Recovered/Resolved]
